FAERS Safety Report 22530003 (Version 1)
Quarter: 2023Q2

REPORT INFORMATION
  Report Type: Spontaneous
  Country: KR (occurrence: KR)
  Receive Date: 20230607
  Receipt Date: 20230607
  Transmission Date: 20230722
  Serious: Yes (Hospitalization)
  Sender: FDA-Public Use
  Company Number: KR-ORGANON-O2306KOR000096

PATIENT
  Age: 58 Year
  Sex: Female
  Weight: 63.8 kg

DRUGS (8)
  1. HYDROCHLOROTHIAZIDE\LOSARTAN POTASSIUM [Suspect]
     Active Substance: HYDROCHLOROTHIAZIDE\LOSARTAN POTASSIUM
     Indication: Essential hypertension
     Dosage: 6.25MG, 1 DAY (FILM COATED TABLET)
     Route: 048
     Dates: start: 20180425
  2. LORAZEPAM [Concomitant]
     Active Substance: LORAZEPAM
     Indication: Prophylaxis
     Dosage: 0.5 MILLIGRAM, Q12H (0.5 DAY) (UNCOATED TABLET)
     Route: 048
     Dates: start: 20180605
  3. TRIAZOLAM [Concomitant]
     Active Substance: TRIAZOLAM
     Indication: Prophylaxis
     Dosage: 0.25 MILLIGRAM, QD (UNCOATED TABLET)
     Route: 048
     Dates: start: 20180605
  4. LOPERAMIDE HYDROCHLORIDE [Concomitant]
     Active Substance: LOPERAMIDE HYDROCHLORIDE
     Indication: Tubulointerstitial nephritis
     Dosage: 2 MILLIGRAM, BID (0.5 DAY) (HARD CAPSULE, POWDER)
     Route: 048
     Dates: start: 20180503, end: 20180507
  5. TIROPRAMIDE HYDROCHLORIDE [Concomitant]
     Indication: Tubulointerstitial nephritis
     Dosage: 100 MILLIGRAM, BID (0.5 DAY)
     Route: 048
     Dates: start: 20180503, end: 20180507
  6. GABAPENTIN [Concomitant]
     Active Substance: GABAPENTIN
     Indication: Prophylaxis
     Dosage: 100 MILLIGRAM, TID (0.33 DAY)
     Route: 048
     Dates: start: 20180514
  7. SODIUM ALGINATE [Concomitant]
     Active Substance: SODIUM ALGINATE
     Indication: Prophylaxis
     Dosage: 20 MILLILITER, TID (033 DAY) (LIQUID SYRUP)
     Route: 048
     Dates: start: 20180515, end: 20180522
  8. IBUPROFEN ARGININE [Concomitant]
     Active Substance: IBUPROFEN ARGININE
     Indication: Prophylaxis
     Dosage: 370 MILLIGRAM, TID (033 DAY)
     Route: 048
     Dates: start: 20180426

REACTIONS (1)
  - Pyelonephritis [Recovered/Resolved]

NARRATIVE: CASE EVENT DATE: 20180712
